FAERS Safety Report 8908241 (Version 2)
Quarter: 2013Q1

REPORT INFORMATION
  Report Type: Report from Study
  Country: US (occurrence: GB)
  Receive Date: 20121114
  Receipt Date: 20130211
  Transmission Date: 20140127
  Serious: No
  Sender: FDA-Public Use
  Company Number: US-ABBOTT-12P-163-0988206-00

PATIENT
  Age: 34 Year
  Sex: Female

DRUGS (3)
  1. NORVIR [Suspect]
     Indication: ANTIVIRAL TREATMENT
     Route: 048
     Dates: start: 20120530
  2. TRUVADA [Suspect]
     Indication: ANTIVIRAL TREATMENT
     Dates: start: 20120530
  3. REYATAZ [Suspect]
     Indication: ANTIVIRAL TREATMENT
     Dates: start: 20120530

REACTIONS (1)
  - Uterine leiomyoma [Unknown]
